FAERS Safety Report 9165697 (Version 2)
Quarter: 2013Q1

REPORT INFORMATION
  Report Type: Report from Study
  Country: MX (occurrence: MX)
  Receive Date: 20130315
  Receipt Date: 20130321
  Transmission Date: 20140127
  Serious: Yes (Hospitalization)
  Sender: FDA-Public Use
  Company Number: MX-ROCHE-1200324

PATIENT
  Age: 33 Year
  Sex: Female
  Weight: 84.5 kg

DRUGS (16)
  1. BLINDED TOCILIZUMAB [Suspect]
     Indication: RHEUMATOID ARTHRITIS
     Dosage: LAST DOSE PRIOR TO SAE: 10/OCT/2011
     Route: 042
     Dates: start: 20110523
  2. BLINDED TOCILIZUMAB [Suspect]
     Indication: RHEUMATOID ARTHRITIS
     Dosage: LAST DOSE PRIOR SAE: 10/OCT/2011
     Route: 058
     Dates: start: 20110523
  3. TOCILIZUMAB [Suspect]
     Indication: RHEUMATOID ARTHRITIS
     Dosage: LAST DOSE PRIOR SAE: 05/FEB/2013 AT 34 ML
     Route: 042
     Dates: start: 20111114
  4. ENALAPRIL [Concomitant]
     Route: 048
     Dates: start: 2010
  5. PARACETAMOL [Concomitant]
     Indication: RHEUMATOID ARTHRITIS
     Route: 048
     Dates: start: 1996
  6. PARACETAMOL [Concomitant]
     Route: 048
     Dates: start: 20130313
  7. DICLOFENAC [Concomitant]
     Indication: RHEUMATOID ARTHRITIS
     Route: 048
     Dates: start: 1996
  8. DICLOFENAC [Concomitant]
     Route: 048
     Dates: start: 20120528
  9. PREDNISONE [Concomitant]
     Indication: RHEUMATOID ARTHRITIS
     Route: 048
     Dates: start: 1996
  10. METHOTREXATE [Concomitant]
     Indication: RHEUMATOID ARTHRITIS
     Route: 048
     Dates: start: 20110531
  11. FOLIC ACID [Concomitant]
     Route: 048
     Dates: start: 20110531
  12. OMEPRAZOLE [Concomitant]
     Route: 048
     Dates: start: 20120305
  13. BEZAFIBRATE [Concomitant]
     Route: 048
     Dates: start: 20120528
  14. PRAVASTATINE [Concomitant]
     Route: 048
     Dates: start: 20120528
  15. ALLOPURINOL [Concomitant]
     Route: 048
     Dates: start: 20120820
  16. CIPROFLOXACIN [Concomitant]
     Route: 048
     Dates: start: 20130313

REACTIONS (1)
  - Laceration [Not Recovered/Not Resolved]
